FAERS Safety Report 8549188-1 (Version None)
Quarter: 2012Q3

REPORT INFORMATION
  Report Type: 
  Country: None (occurrence: None)
  Receive Date: 20120730
  Receipt Date: 20120724
  Transmission Date: 20120928
  Serious: Yes (Other)
  Sender: FDA-Public Use
  Company Number: US-BAYER-2012-075589

PATIENT
  Age: 64 Year
  Sex: Female
  Weight: 61.224 kg

DRUGS (2)
  1. ALEVE (CAPLET) [Suspect]
     Indication: PAIN
     Dosage: 2 DF, ONCE
     Route: 048
     Dates: start: 20110601, end: 20110601
  2. PERGOGERIC [Concomitant]

REACTIONS (4)
  - CARDIAC FLUTTER [None]
  - URTICARIA [None]
  - CHEST PAIN [None]
  - TREMOR [None]
